FAERS Safety Report 8536564-6 (Version None)
Quarter: 2012Q3

REPORT INFORMATION
  Report Type: 
  Country: None (occurrence: None)
  Receive Date: 20120725
  Receipt Date: 20120716
  Transmission Date: 20120928
  Serious: Yes (Hospitalization)
  Sender: FDA-Public Use
  Company Number: GB-SANOFI-AVENTIS-2011SA073105

PATIENT
  Sex: Female

DRUGS (37)
  1. POTASSIUM CHLORIDE [Suspect]
     Route: 048
     Dates: start: 20090901
  2. DICYCLOMINE [Suspect]
     Route: 048
     Dates: start: 20090501
  3. LORAZEPAM [Suspect]
     Route: 048
     Dates: start: 20090501
  4. CARISOPRODOL [Suspect]
     Dosage: PRN
     Route: 065
  5. ESOMEPRAZOLE [Concomitant]
     Dates: start: 20090501
  6. PREDNISONE [Suspect]
     Route: 048
  7. ASPIRIN [Concomitant]
     Dates: start: 20090501
  8. LEVOTHYROXINE SODIUM [Concomitant]
     Dates: start: 20090101
  9. METOPROLOL TARTRATE [Concomitant]
     Dates: start: 20090101
  10. PHENOXYBENZAMINE [Concomitant]
     Dates: start: 20090101
  11. METOPROLOL SUCCINATE [Concomitant]
  12. POTASSIUM CHLORIDE [Suspect]
     Route: 048
     Dates: start: 20090701
  13. METAXALONE [Suspect]
     Dosage: PRN
     Route: 048
  14. CALCIUM/VITAMIN D [Concomitant]
  15. SACCHAROMYCES BOULARDII [Concomitant]
     Dates: start: 20090101
  16. OMEPRAZOLE [Concomitant]
     Dates: start: 20090501
  17. DIGOXIN [Suspect]
     Route: 048
  18. FUROSEMIDE [Suspect]
     Route: 065
  19. ROSUVASTATIN [Concomitant]
  20. ATROPINE/DIPHENOXYLATE [Suspect]
     Dosage: PRN
     Route: 048
  21. AMLODIPINE [Concomitant]
  22. ACETAMINOPHEN [Concomitant]
     Dates: start: 20090101
  23. MULTI-VITAMINS [Concomitant]
  24. SUCRALFATE [Suspect]
     Route: 048
  25. HYDROCODONE BITARTRATE + ACETAMINOPHEN [Concomitant]
     Dosage: 5/500 MG
  26. EZETIMIBE [Concomitant]
  27. MEMANTINE HCL [Concomitant]
     Dates: start: 20090101
  28. PSYLLIUM [Concomitant]
     Dates: start: 20090101
  29. METOLAZONE [Concomitant]
     Dates: start: 20090101
  30. TERIPARATIDE [Concomitant]
     Dosage: 750MCG/3ML
     Dates: start: 20090101
  31. VITAMIN D [Concomitant]
     Dates: start: 20090101
  32. DIGOXIN [Suspect]
     Route: 048
  33. DICYCLOMINE [Suspect]
     Route: 048
     Dates: start: 20090701, end: 20090801
  34. LORAZEPAM [Suspect]
     Indication: SLEEP DISORDER
     Dosage: 0.5-1.5 MG. PRN
     Route: 048
  35. FLUTICASONE PROPIONATE/SALMETEROL [Suspect]
     Dosage: INHALER, 500/50 MCG, 1 PUFF BID
     Route: 054
     Dates: start: 20090513
  36. FENTANYL [Concomitant]
     Dosage: PATCH
     Dates: start: 20090101
  37. LEVALBUTEROL HYDROCHLORIDE [Concomitant]
     Dates: start: 20090101

REACTIONS (15)
  - CONSTIPATION [None]
  - VISUAL IMPAIRMENT [None]
  - DEPRESSION [None]
  - DELIRIUM [None]
  - URINARY TRACT INFECTION [None]
  - FATIGUE [None]
  - HALLUCINATION, VISUAL [None]
  - PSEUDODEMENTIA [None]
  - DECREASED APPETITE [None]
  - CONFUSIONAL STATE [None]
  - WEIGHT DECREASED [None]
  - AGITATION [None]
  - DEHYDRATION [None]
  - DISORIENTATION [None]
  - INSOMNIA [None]
